FAERS Safety Report 19655153 (Version 1)
Quarter: 2021Q3

REPORT INFORMATION
  Report Type: Spontaneous
  Country: US (occurrence: US)
  Receive Date: 20210804
  Receipt Date: 20210804
  Transmission Date: 20211014
  Serious: Yes (Other)
  Sender: FDA-Public Use
  Company Number: US-ASTELLAS-2021US028558

PATIENT
  Sex: Female

DRUGS (1)
  1. MYRBETRIQ [Suspect]
     Active Substance: MIRABEGRON
     Indication: INCONTINENCE
     Route: 065
     Dates: start: 2021, end: 20210726

REACTIONS (11)
  - Feeling abnormal [Recovering/Resolving]
  - Constipation [Unknown]
  - Hypertension [Unknown]
  - Abdominal pain upper [Unknown]
  - Swelling face [Unknown]
  - Haematochezia [Unknown]
  - Insomnia [Unknown]
  - Periorbital swelling [Unknown]
  - Headache [Unknown]
  - Pain [Unknown]
  - Drug ineffective for unapproved indication [Unknown]

NARRATIVE: CASE EVENT DATE: 2021
